FAERS Safety Report 4811722-2 (Version None)
Quarter: 2005Q4

REPORT INFORMATION
  Report Type: 
  Country: None (occurrence: None)
  Receive Date: 20051025
  Receipt Date: 20051021
  Transmission Date: 20060501
  Serious: Yes (Hospitalization, Other)
  Sender: FDA-Public Use
  Company Number: 200511784GDS

PATIENT
  Age: 40 Year
  Sex: Male
  Weight: 72 kg

DRUGS (3)
  1. AVELOX [Suspect]
     Indication: SINUSITIS
     Dosage: 400 MG, QD, ORAL
     Route: 048
     Dates: start: 20050522, end: 20050531
  2. IBUPROFEN [Concomitant]
  3. DEXA-RHINASPRAY [Concomitant]

REACTIONS (3)
  - CONTUSION [None]
  - LEUKOPENIA [None]
  - THROMBOCYTOPENIA [None]
